FAERS Safety Report 6273379-6 (Version None)
Quarter: 2009Q3

REPORT INFORMATION
  Report Type: 
  Country: None (occurrence: None)
  Receive Date: 20090715
  Receipt Date: 20081124
  Transmission Date: 20100115
  Serious: Yes (Other)
  Sender: FDA-Public Use
  Company Number: 2008US002894

PATIENT
  Age: 66 Year
  Sex: Female

DRUGS (3)
  1. ADENOSCAN [Suspect]
     Indication: SCAN MYOCARDIAL PERFUSION
     Dates: start: 20081030, end: 20081030
  2. ATENOLOL [Concomitant]
  3. DIOVAN HCT [Concomitant]

REACTIONS (2)
  - PYREXIA [None]
  - TREMOR [None]
